FAERS Safety Report 12271059 (Version 2)
Quarter: 2016Q2

REPORT INFORMATION
  Report Type: Spontaneous
  Country: KW (occurrence: KW)
  Receive Date: 20160415
  Receipt Date: 20160427
  Transmission Date: 20160815
  Serious: Yes (Other)
  Sender: FDA-Public Use
  Company Number: KW-WATSON-2016-07404

PATIENT
  Age: 29 Year
  Sex: Female

DRUGS (6)
  1. FLUOXETINE [Suspect]
     Active Substance: FLUOXETINE HYDROCHLORIDE
     Indication: PSYCHOTIC DISORDER
     Dosage: 20 MG, DAILY
     Route: 065
  2. RISPERIDONE (UNKNOWN) [Interacting]
     Active Substance: RISPERIDONE
     Indication: SCHIZOPHRENIA
     Dosage: 50 MG/2 WEEKS
     Route: 040
  3. PYRIDOSTIGMINE [Concomitant]
     Active Substance: PYRIDOSTIGMINE
     Indication: MYASTHENIA GRAVIS
     Route: 065
  4. AZATHIOPRINE. [Concomitant]
     Active Substance: AZATHIOPRINE
     Indication: MYASTHENIA GRAVIS
     Dosage: 2.5 MG/KG, DAILY
     Route: 065
  5. INVEGA [Concomitant]
     Active Substance: PALIPERIDONE
  6. INVEGA [Concomitant]
     Active Substance: PALIPERIDONE
     Indication: PSYCHOTIC DISORDER
     Dosage: 6 MG, DAILY
     Route: 065

REACTIONS (2)
  - Myasthenia gravis [Recovered/Resolved]
  - Drug interaction [Recovered/Resolved]
